FAERS Safety Report 23756625 (Version 1)
Quarter: 2024Q2

REPORT INFORMATION
  Report Type: Spontaneous
  Country: US (occurrence: US)
  Receive Date: 20240418
  Receipt Date: 20240418
  Transmission Date: 20240715
  Serious: Yes (Other)
  Sender: FDA-Public Use
  Company Number: US-MPL-000037

PATIENT
  Sex: Male
  Weight: 3.17 kg

DRUGS (1)
  1. PYRIDOSTIGMINE [Suspect]
     Active Substance: PYRIDOSTIGMINE
     Indication: Congenital myasthenic syndrome
     Route: 048

REACTIONS (6)
  - Neonatal respiratory distress [Recovering/Resolving]
  - Bradycardia neonatal [Unknown]
  - Secretion discharge [Unknown]
  - Chorea [Recovered/Resolved]
  - Condition aggravated [Unknown]
  - Therapy partial responder [Unknown]
